FAERS Safety Report 16652455 (Version 1)
Quarter: 2019Q3

REPORT INFORMATION
  Report Type: Spontaneous
  Country: GB (occurrence: GB)
  Receive Date: 20190731
  Receipt Date: 20190731
  Transmission Date: 20191004
  Serious: Yes (Hospitalization)
  Sender: FDA-Public Use
  Company Number: GB-PFIZER INC-2019318696

PATIENT
  Age: 73 Year
  Sex: Male

DRUGS (33)
  1. PARACETAMOL [Suspect]
     Active Substance: ACETAMINOPHEN
     Dosage: UNK
  2. FUROSEMIDE. [Concomitant]
     Active Substance: FUROSEMIDE
     Dosage: 80 MG, 1X/DAY (EACH MORNING AND LUNCHTIME.)
  3. E45 [Concomitant]
     Active Substance: LANOLIN\LIGHT MINERAL OIL\PARAFFIN
     Dosage: UNK (AS DIRECTED.)
  4. FLETCHER^S PHOSPHATE ENEMA [Concomitant]
     Dosage: 1 DF, 1X/DAY (128 ML LONG TUBE)
  5. DULOXETINE. [Concomitant]
     Active Substance: DULOXETINE
     Dosage: 30 MG, 1X/DAY
  6. CASSIA SENNA [Concomitant]
     Active Substance: HERBALS\SENNOSIDES
     Dosage: 15 MG, 1X/DAY (AT NIGHT)
  7. LACTULOSE. [Concomitant]
     Active Substance: LACTULOSE
     Dosage: 15 ML, AS NEEDED (3.1-3.7G/5ML. 15ML TWICE A DAY.)
     Route: 048
  8. DOCUSATE [Concomitant]
     Active Substance: DOCUSATE
     Dosage: 400 MG, 1X/DAY
  9. UREA. [Concomitant]
     Active Substance: UREA
     Dosage: 1 DF, AS NEEDED
  10. LONGTEC [Concomitant]
     Active Substance: OXYCODONE HYDROCHLORIDE
     Dosage: 20 MG, UNK (ONE OR TWO TWICE A DAY, DOSE VARIABLE MAXIMUM 40MG MORNING 50MG NIGHT.)
  11. LONGTEC [Concomitant]
     Active Substance: OXYCODONE HYDROCHLORIDE
     Dosage: 10 MG, 1X/DAY (NIGHT.)
  12. COLECALCIFEROL [Concomitant]
     Active Substance: CHOLECALCIFEROL
     Dosage: 20000 IU, MONTHLY
  13. LAXIDO [Concomitant]
     Active Substance: POLYETHYLENE GLYCOL 3350\POTASSIUM CHLORIDE\SODIUM BICARBONATE\SODIUM CHLORIDE
     Dosage: 2 DF, 1X/DAY (POWDER SACHETS. ORANGE. SUGAR FREE.)
  14. FLUCONAZOLE. [Suspect]
     Active Substance: FLUCONAZOLE
     Dosage: UNK
  15. LANSOPRAZOLE. [Concomitant]
     Active Substance: LANSOPRAZOLE
     Dosage: 30 MG, 1X/DAY
  16. CICLOSPORIN [Concomitant]
     Active Substance: CYCLOSPORINE
     Dosage: 0.3 ML, 1X/DAY (LEFT EYE)
     Route: 047
  17. CIPROFLOXACIN HCL [Suspect]
     Active Substance: CIPROFLOXACIN HYDROCHLORIDE
     Dosage: UNK
  18. CITALOPRAM [Concomitant]
     Active Substance: CITALOPRAM HYDROBROMIDE
     Dosage: 20 MG, 1X/DAY
  19. PREGABALIN. [Concomitant]
     Active Substance: PREGABALIN
     Dosage: 600 MG, 1X/DAY
  20. ATORVASTATIN CALCIUM. [Suspect]
     Active Substance: ATORVASTATIN CALCIUM
     Dosage: 10 MG, 1X/DAY
  21. TEICOPLANIN [Suspect]
     Active Substance: TEICOPLANIN
     Dosage: UNK
  22. OXYCODONE [Concomitant]
     Active Substance: OXYCODONE
     Dosage: 5 ML, AS NEEDED (5MG/5ML. FOUR TIMES A DAY, SUGAR FREE)
     Route: 048
  23. LAMOTRIGINE. [Concomitant]
     Active Substance: LAMOTRIGINE
     Dosage: 25 MG, 1X/DAY
  24. SODIUM HYALURONATE [Concomitant]
     Active Substance: HYALURONATE SODIUM
     Dosage: 50 UG, 1X/DAY (EACH MORNING.)
  25. ZOPICLONE [Concomitant]
     Active Substance: ZOPICLONE
     Dosage: 7.5 MG, AS NEEDED (AT NIGHT.)
  26. CALMURID [Concomitant]
     Dosage: 1 DF, UNK (A THICK LAYER FOR 3-5 MINUTES, MASSAGE INTO AREA AND REMOVE EXCESS. USUALLY TWICE DAILY.)
  27. LEVOTHYROXINE. [Concomitant]
     Active Substance: LEVOTHYROXINE
     Dosage: 50 UG, 1X/DAY (EACH MORNING BEFORE BREAKFAST.)
  28. HUMULIN M3 [Concomitant]
     Active Substance: INSULIN HUMAN
     Dosage: 140 IU, 1X/DAY (100UNITS/ML)
     Route: 058
  29. MOVELAT [Concomitant]
     Dosage: 4 DF, 1X/DAY
  30. ACETYLSALICYLIC ACID [Concomitant]
     Active Substance: ASPIRIN
     Dosage: 75 MG, 1X/DAY
  31. CARBOMER [Concomitant]
     Active Substance: CARBOMER
     Dosage: UNK
     Route: 047
  32. ULTIBRO BREEZHALER [Concomitant]
     Active Substance: GLYCOPYRRONIUM\INDACATEROL
     Dosage: 1 DF, 1X/DAY (85MICROGRAM/43MICROGRAM, INHALATION POWDER CAPSULES WITH DEVICE)
     Route: 055
  33. HYLO TEAR [Concomitant]
     Dosage: 1 GTT, AS NEEDED (ONE DROP TO LEFT EYE.)
     Route: 047

REACTIONS (1)
  - Liver function test abnormal [Recovered/Resolved]
